FAERS Safety Report 25097990 (Version 2)
Quarter: 2025Q1

REPORT INFORMATION
  Report Type: Spontaneous
  Country: US (occurrence: US)
  Receive Date: 20250320
  Receipt Date: 20250328
  Transmission Date: 20250409
  Serious: Yes (Hospitalization, Other)
  Sender: BRISTOL-MYERS SQUIBB COMPANY
  Company Number: US-BRISTOL-MYERS SQUIBB COMPANY-2025-037490

PATIENT
  Age: 88 Year
  Sex: Male

DRUGS (4)
  1. REVLIMID [Suspect]
     Active Substance: LENALIDOMIDE
     Indication: Mantle cell lymphoma
     Dates: start: 20240827
  2. REVLIMID [Suspect]
     Active Substance: LENALIDOMIDE
     Dosage: FREQUENCY: ON DAYS 1 THROUGH TO 21 OF A 28 DAY CYCLE
     Route: 048
     Dates: start: 20241101
  3. REVLIMID [Suspect]
     Active Substance: LENALIDOMIDE
     Dosage: FREQUENCY: ON DAYS 1 THROUGH TO 21 OF A 28 DAY CYCLE
     Route: 048
     Dates: start: 20250109
  4. REVLIMID [Suspect]
     Active Substance: LENALIDOMIDE
     Dosage: FREQUENCY: ON DAYS 1 THROUGH TO 21 OF A 28 DAY CYCLE
     Route: 048
     Dates: start: 20250214

REACTIONS (1)
  - Pneumonia [Unknown]
